FAERS Safety Report 6339583-3 (Version None)
Quarter: 2009Q3

REPORT INFORMATION
  Report Type: 
  Country: None (occurrence: None)
  Receive Date: 20090903
  Receipt Date: 20081015
  Transmission Date: 20100115
  Serious: No
  Sender: FDA-Public Use
  Company Number: US-ALLERGAN-0812980US

PATIENT
  Sex: Female

DRUGS (1)
  1. ELIMITE [Suspect]
     Indication: ACARODERMATITIS
     Dosage: UNK, UNKNOWN
     Route: 061

REACTIONS (1)
  - MENTAL DISORDER [None]
